FAERS Safety Report 7199260-6 (Version None)
Quarter: 2010Q4

REPORT INFORMATION
  Report Type: 
  Country: None (occurrence: None)
  Receive Date: 20101223
  Receipt Date: 20101223
  Transmission Date: 20110411
  Serious: Yes (Other)
  Sender: FDA-Public Use
  Company Number: None

PATIENT
  Age: 52 Year
  Sex: Female
  Weight: 80.7403 kg

DRUGS (1)
  1. LEVAQUIN [Suspect]
     Indication: SINUSITIS
     Dosage: 1 TABLET ONCE A DAY PO
     Route: 048
     Dates: start: 20101214, end: 20101221

REACTIONS (4)
  - ARTHRALGIA [None]
  - HYPERAESTHESIA [None]
  - MYALGIA [None]
  - PAIN [None]
